FAERS Safety Report 7807358-1 (Version None)
Quarter: 2011Q4

REPORT INFORMATION
  Report Type: 
  Country: None (occurrence: None)
  Receive Date: 20111011
  Receipt Date: 20110928
  Transmission Date: 20120403
  Serious: Yes (Death)
  Sender: FDA-Public Use
  Company Number: DE-NOVOPROD-322384

PATIENT

DRUGS (5)
  1. RAMIPRIL [Concomitant]
     Dosage: 1 UNK, QD
  2. SIMVASTATIN [Concomitant]
     Dosage: 1 UNK, QD; REPORTED AS ^20^
  3. NEBIVOLOL HCL [Concomitant]
     Dosage: A? PER DAY
  4. VICTOZA [Suspect]
     Indication: TYPE 2 DIABETES MELLITUS
     Dosage: 1.8 MG, QD
     Route: 058
     Dates: end: 20100902
  5. ASPIRIN [Concomitant]
     Dosage: 1 UNK, QD; REPORTED AS ^100!

REACTIONS (1)
  - SUDDEN DEATH [None]
